FAERS Safety Report 8068600-8 (Version None)
Quarter: 2012Q1

REPORT INFORMATION
  Report Type: 
  Country: None (occurrence: None)
  Receive Date: 20120124
  Receipt Date: 20111110
  Transmission Date: 20120608
  Serious: No
  Sender: FDA-Public Use
  Company Number: US-AMGEN-USASP2011059177

PATIENT
  Sex: Female

DRUGS (10)
  1. PROLIA [Suspect]
  2. TYLENOL ARTHRITIS EXTENDED RELIEF [Concomitant]
     Indication: ARTHRITIS
     Dosage: UNK
  3. CORTISONE ACETATE [Concomitant]
     Indication: OSTEOARTHRITIS
     Dosage: UNK UNK, Q2MO
  4. PROLIA [Suspect]
     Indication: OSTEOPOROSIS POSTMENOPAUSAL
     Dosage: UNK
  5. CALCIUM WITH VITAMIN D             /00944201/ [Concomitant]
  6. SOTALOL HCL [Concomitant]
  7. LIPITOR [Concomitant]
  8. GLUCOSAMINE CHONDROITIN            /01430901/ [Concomitant]
  9. ASPIRIN [Concomitant]
     Dosage: 325 MG, UNK
  10. CORTISONE ACETATE [Concomitant]
     Indication: CARTILAGE ATROPHY

REACTIONS (1)
  - LIP EXFOLIATION [None]
